FAERS Safety Report 10409762 (Version 1)
Quarter: 2014Q2

REPORT INFORMATION
  Report Type: Spontaneous
  Country: US (occurrence: None)
  Receive Date: 20140604
  Receipt Date: 20140604
  Transmission Date: 20141212
  Serious: No
  Sender: FDA-Public Use
  Company Number: 163-POMAL-14045884

PATIENT
  Age: 84 Year
  Sex: Female

DRUGS (16)
  1. POMALYST (POMALIDOMIDE) (4 MILLIGRAM, CAPSULES) [Suspect]
     Indication: PLASMA CELL MYELOMA
     Route: 048
     Dates: start: 20130722
  2. LEVOTHYROXINE SODIUM(LEVOTHYROXINE SODIUM) [Concomitant]
  3. PROPRANOLOL HCL(PROPRANOLOL HYDROCHLORIDE) [Concomitant]
  4. AMLODIPINE BESYLATE(AMLODIPINE BESILATE) [Concomitant]
  5. DEXAMETHASONE(DEXAMETHASONE) [Concomitant]
  6. WARFARIN SODIUM(WARFARIN SODIUM) [Concomitant]
  7. CRESTOR(ROSUVASTATIN) [Concomitant]
  8. TOLTERODINE TARTRATE(TOLTERODINE L-TARTRATE) [Concomitant]
  9. LANSOPRAZOLE(LANSOPRAZOLE) [Concomitant]
  10. PROCHLORPERAZINE MALEATE(PROCHLORPERAZINE MALEATE) [Concomitant]
  11. CALCIUM(CALCIUM) [Concomitant]
  12. ASPIRIN(ACETYLSALICYLIC ACID) [Concomitant]
  13. GLUCOSAMINE CHONDROITIN(GLUCOSAMINE W/CHONDROITIN SULFATE) [Concomitant]
  14. MULTIVITAMINS(MULTIVITAMINS) [Concomitant]
  15. PRESERVISION [Concomitant]
  16. TYLENOL(PARACETAMOL) [Concomitant]

REACTIONS (1)
  - Alopecia [None]
